FAERS Safety Report 5264297-0 (Version None)
Quarter: 2007Q1

REPORT INFORMATION
  Report Type: 
  Country: None (occurrence: None)
  Receive Date: 20070309
  Receipt Date: 20070226
  Transmission Date: 20070707
  Serious: Yes (Other)
  Sender: FDA-Public Use
  Company Number: FRVA20070005

PATIENT
  Age: 54 Year
  Sex: Female

DRUGS (2)
  1. AURADOL (FROVATRIPTAN ) 2.5 MG    VERNALIS [Suspect]
     Indication: MIGRAINE
     Dosage: 2.5 MG ONCE PO
     Route: 048
     Dates: start: 20070203, end: 20070203
  2. FROVATRIPTAN 2.5 MG UNKNOWN [Suspect]
     Indication: MIGRAINE
     Dosage: 2.5 MG 2 DOSES PO
     Route: 048
     Dates: start: 20070126, end: 20070131

REACTIONS (2)
  - DYSGRAPHIA [None]
  - SPEECH DISORDER [None]
